FAERS Safety Report 23298639 (Version 2)
Quarter: 2023Q4

REPORT INFORMATION
  Report Type: Report from Study
  Country: US (occurrence: US)
  Receive Date: 20231214
  Receipt Date: 20231228
  Transmission Date: 20240110
  Serious: Yes (Other)
  Sender: FDA-Public Use
  Company Number: US-ABBVIE-5535833

PATIENT
  Age: 68 Year
  Sex: Female
  Weight: 97.522 kg

DRUGS (6)
  1. RINVOQ [Suspect]
     Active Substance: UPADACITINIB
     Indication: Rheumatoid arthritis
     Dosage: 1 TABLET?15 MILLIGRAM
     Route: 048
     Dates: start: 20201222, end: 20231115
  2. RINVOQ [Suspect]
     Active Substance: UPADACITINIB
     Indication: Rheumatoid arthritis
     Dosage: 1 TABLET?15 MILLIGRAM
     Route: 048
     Dates: start: 20231126
  3. GABAPENTIN [Concomitant]
     Active Substance: GABAPENTIN
     Indication: Rheumatoid arthritis
  4. OZEMPIC [Concomitant]
     Active Substance: SEMAGLUTIDE
     Indication: Diabetes mellitus
  5. CELEBREX [Concomitant]
     Active Substance: CELECOXIB
     Indication: Rheumatoid arthritis
     Dosage: 200 MILLIGRAM
  6. GLIMEPIRIDE [Concomitant]
     Active Substance: GLIMEPIRIDE
     Indication: Diabetes mellitus

REACTIONS (3)
  - Tooth abscess [Recovering/Resolving]
  - Weight decreased [Unknown]
  - Immunodeficiency [Unknown]

NARRATIVE: CASE EVENT DATE: 20230911
